FAERS Safety Report 15564983 (Version 1)
Quarter: 2018Q4

REPORT INFORMATION
  Report Type: Spontaneous
  Country: US (occurrence: US)
  Receive Date: 20181030
  Receipt Date: 20181030
  Transmission Date: 20190205
  Serious: No
  Sender: FDA-Public Use
  Company Number: US-ENDO PHARMACEUTICALS INC-2018-019872

PATIENT
  Sex: Female

DRUGS (1)
  1. PROPAFENONE HCL ER [Suspect]
     Active Substance: PROPAFENONE

REACTIONS (1)
  - Dysgeusia [Unknown]
